FAERS Safety Report 21721313 (Version 3)
Quarter: 2022Q4

REPORT INFORMATION
  Report Type: Spontaneous
  Country: CA (occurrence: CA)
  Receive Date: 20221213
  Receipt Date: 20221220
  Transmission Date: 20230113
  Serious: Yes (Hospitalization, Other)
  Sender: FDA-Public Use
  Company Number: CA-GLAXOSMITHKLINE-CA2022AMR183504

PATIENT

DRUGS (1)
  1. BENLYSTA [Suspect]
     Active Substance: BELIMUMAB
     Indication: Systemic lupus erythematosus
     Dosage: UNK

REACTIONS (9)
  - Hospitalisation [Unknown]
  - Delirium [Unknown]
  - Block vertebra [Unknown]
  - Adverse drug reaction [Unknown]
  - Loss of personal independence in daily activities [Unknown]
  - Cognitive disorder [Unknown]
  - Malaise [Unknown]
  - Back injury [Unknown]
  - Product dose omission issue [Unknown]

NARRATIVE: CASE EVENT DATE: 20221101
